FAERS Safety Report 7352658-5 (Version None)
Quarter: 2011Q1

REPORT INFORMATION
  Report Type: 
  Country: None (occurrence: None)
  Receive Date: 20110301
  Receipt Date: 20100909
  Transmission Date: 20110831
  Serious: Yes (Other)
  Sender: FDA-Public Use
  Company Number: US-JNJFOC-20070204463

PATIENT
  Age: 36 Year
  Sex: Female

DRUGS (4)
  1. TRANXENE [Suspect]
     Indication: SUICIDE ATTEMPT
     Dates: start: 20050601, end: 20050601
  2. MOTRIN [Suspect]
     Indication: SUICIDE ATTEMPT
     Dates: start: 20050601, end: 20050601
  3. LUNESTA [Suspect]
     Indication: SUICIDE ATTEMPT
     Dosage: ORAL
     Route: 048
     Dates: start: 20050601, end: 20050601
  4. DECONGESTANT (NASAL DECONGESTANTS FOR SYSTEMIC USE) [Suspect]
     Indication: SUICIDE ATTEMPT
     Dates: start: 20050601, end: 20050601

REACTIONS (1)
  - MULTIPLE DRUG OVERDOSE INTENTIONAL [None]
